FAERS Safety Report 19904423 (Version 2)
Quarter: 2022Q3

REPORT INFORMATION
  Report Type: Spontaneous
  Country: JP (occurrence: JP)
  Receive Date: 20210930
  Receipt Date: 20220923
  Transmission Date: 20221027
  Serious: Yes (Hospitalization)
  Sender: FDA-Public Use
  Company Number: JP-NOVARTISPH-NVSC2021JP220527

PATIENT
  Age: 27 Year
  Sex: Female

DRUGS (3)
  1. FINGOLIMOD HYDROCHLORIDE [Suspect]
     Active Substance: FINGOLIMOD HYDROCHLORIDE
     Indication: Multiple sclerosis
     Dosage: UNK
     Route: 048
  2. INTERFERON BETA [Concomitant]
     Active Substance: INTERFERON BETA
     Indication: Product used for unknown indication
     Dosage: UNK
     Route: 065
  3. GLATIRAMER ACETATE [Concomitant]
     Active Substance: GLATIRAMER ACETATE
     Indication: Product used for unknown indication
     Dosage: UNK
     Route: 065

REACTIONS (4)
  - Altered state of consciousness [Unknown]
  - Paralysis [Unknown]
  - Aphasia [Unknown]
  - Maternal exposure during pregnancy [Unknown]
